FAERS Safety Report 21011778 (Version 5)
Quarter: 2022Q3

REPORT INFORMATION
  Report Type: Spontaneous
  Country: US (occurrence: US)
  Receive Date: 20220627
  Receipt Date: 20220919
  Transmission Date: 20221026
  Serious: Yes (Other)
  Sender: FDA-Public Use
  Company Number: US-BRISTOL-MYERS SQUIBB COMPANY-2022-063480

PATIENT
  Age: 60 Year
  Sex: Male

DRUGS (2)
  1. REVLIMID [Suspect]
     Active Substance: LENALIDOMIDE
     Indication: Plasma cell myeloma
     Dosage: TAKE 1 CAPSULE BY MOUTH DAILY AT BEDTIME FOR 3 WEEKS ON, 1 WEEK OFF
     Route: 048
     Dates: start: 20220224
  2. REVLIMID [Suspect]
     Active Substance: LENALIDOMIDE
     Dosage: TAKE 1 CAPSULE BY MOUTH EVERY DAY AT BEDTIME FOR 3 WEEKS THEN OFF FOR 1 WEEK
     Route: 048
     Dates: start: 20220324

REACTIONS (3)
  - Cellulitis [Not Recovered/Not Resolved]
  - Blood test abnormal [Unknown]
  - Bacterial infection [Unknown]
